FAERS Safety Report 23154917 (Version 1)
Quarter: 2023Q4

REPORT INFORMATION
  Report Type: Spontaneous
  Country: ES (occurrence: ES)
  Receive Date: 20231107
  Receipt Date: 20231107
  Transmission Date: 20240109
  Serious: Yes (Other)
  Sender: FDA-Public Use
  Company Number: ES-SA-SAC20231018001544

PATIENT
  Age: 32 Year
  Sex: Female
  Weight: 62 kg

DRUGS (1)
  1. DUPIXENT [Suspect]
     Active Substance: DUPILUMAB
     Indication: Dermatitis atopic
     Dosage: 300 MG, QOW
     Route: 058
     Dates: start: 20220202, end: 20231013

REACTIONS (7)
  - Eyelid oedema [Recovered/Resolved]
  - Lip swelling [Recovered/Resolved]
  - Swelling [Recovered/Resolved]
  - Drug hypersensitivity [Recovering/Resolving]
  - Cheilitis [Recovering/Resolving]
  - Eye pruritus [Recovering/Resolving]
  - Stomatitis [Recovering/Resolving]

NARRATIVE: CASE EVENT DATE: 20231014
